FAERS Safety Report 9883648 (Version 2)
Quarter: 2014Q2

REPORT INFORMATION
  Report Type: Report from Study
  Country: GB (occurrence: GB)
  Receive Date: 20140210
  Receipt Date: 20140624
  Transmission Date: 20141212
  Serious: Yes (Hospitalization)
  Sender: FDA-Public Use
  Company Number: GB-ROCHE-1346608

PATIENT
  Sex: Female

DRUGS (10)
  1. RITUXIMAB [Suspect]
     Indication: B-CELL LYMPHOMA
     Route: 065
  2. LISINOPRIL [Suspect]
     Indication: HYPERTENSION
     Route: 048
     Dates: start: 2011
  3. BENDROFLUAZIDE [Suspect]
     Indication: FLUID RETENTION
     Route: 065
     Dates: end: 20120914
  4. FLUCONAZOLE [Suspect]
     Indication: FLUID RETENTION
     Route: 048
     Dates: end: 20120914
  5. METFORMIN [Concomitant]
     Indication: DIABETES MELLITUS
     Route: 048
  6. AMIODARONE [Concomitant]
     Indication: HYPERTENSION
     Route: 048
     Dates: start: 2011
  7. QVAR [Concomitant]
     Indication: ASTHMA
     Dosage: 1 PILL
     Route: 065
  8. CO-TRIMOXAZOLE [Concomitant]
     Route: 048
  9. ACICLOVIR [Concomitant]
     Route: 048
  10. NITROFURANTOIN [Concomitant]
     Indication: URINARY TRACT INFECTION
     Route: 048
     Dates: start: 20120907

REACTIONS (1)
  - Hyponatraemia [Not Recovered/Not Resolved]
